FAERS Safety Report 10279761 (Version 1)
Quarter: 2014Q3

REPORT INFORMATION
  Report Type: Spontaneous
  Country: US (occurrence: None)
  Receive Date: 20140702
  Receipt Date: 20140702
  Transmission Date: 20150326
  Serious: Yes (Hospitalization)
  Sender: FDA-Public Use
  Company Number: None

PATIENT
  Age: 53 Year
  Sex: Male
  Weight: 54.8 kg

DRUGS (2)
  1. CARBOPLATIN. [Suspect]
     Active Substance: CARBOPLATIN
     Dates: end: 20140625
  2. TAXOTERE [Suspect]
     Active Substance: DOCETAXEL
     Dates: end: 20140625

REACTIONS (3)
  - Hypotension [None]
  - Syncope [None]
  - Anaemia [None]

NARRATIVE: CASE EVENT DATE: 20140629
